FAERS Safety Report 20752629 (Version 1)
Quarter: 2022Q2

REPORT INFORMATION
  Report Type: Spontaneous
  Country: US (occurrence: None)
  Receive Date: 20220426
  Receipt Date: 20220426
  Transmission Date: 20220720
  Serious: No
  Sender: FDA-Public Use
  Company Number: US-ROCHE-2849046

PATIENT
  Sex: Male

DRUGS (1)
  1. ESBRIET [Suspect]
     Active Substance: PIRFENIDONE
     Indication: Product used for unknown indication
     Dosage: ONE TABLET AFTER LUNCH AND ONE TABLET AFTER DINNER ;ONGOING: NO
     Route: 048
     Dates: start: 2021, end: 2021

REACTIONS (3)
  - Feeling abnormal [Recovered/Resolved]
  - Eructation [Recovered/Resolved]
  - Off label use [Unknown]
